FAERS Safety Report 8457228-3 (Version None)
Quarter: 2012Q2

REPORT INFORMATION
  Report Type: 
  Country: None (occurrence: None)
  Receive Date: 20120621
  Receipt Date: 20120611
  Transmission Date: 20120825
  Serious: Yes (Hospitalization)
  Sender: FDA-Public Use
  Company Number: TW-PFIZER INC-2012127653

PATIENT
  Age: 40 Year
  Sex: Male
  Weight: 86 kg

DRUGS (5)
  1. AMLODIPINE [Concomitant]
     Indication: HYPERTENSION
     Dosage: UNK
     Route: 048
     Dates: start: 20110919, end: 20120524
  2. ACETAMINOPHEN [Concomitant]
     Indication: PYREXIA
     Dosage: UNK
     Route: 048
     Dates: start: 20120508
  3. NIFEDIPINE [Concomitant]
     Indication: HYPERTENSION
     Dosage: UNK
     Route: 048
     Dates: start: 20120524, end: 20120526
  4. AXITINIB [Suspect]
     Indication: HEPATIC NEOPLASM MALIGNANT
     Dosage: 5 MG, 2X/DAY
     Route: 048
     Dates: start: 20120517, end: 20120526
  5. URSODIOL [Concomitant]
     Indication: BLOOD BILIRUBIN INCREASED
     Dosage: UNK
     Route: 048
     Dates: start: 20120410, end: 20120517

REACTIONS (3)
  - ABDOMINAL INFECTION [None]
  - HEPATIC ENCEPHALOPATHY [None]
  - UPPER GASTROINTESTINAL HAEMORRHAGE [None]
